FAERS Safety Report 9254016 (Version 1)
Quarter: 2013Q2

REPORT INFORMATION
  Report Type: Spontaneous
  Country: US (occurrence: None)
  Receive Date: 20130419
  Receipt Date: 20130419
  Transmission Date: 20140414
  Serious: Yes (Hospitalization)
  Sender: FDA-Public Use
  Company Number: 1674484

PATIENT
  Age: 35 Year
  Sex: Female

DRUGS (9)
  1. DIPHENHYDRAMINE [Suspect]
     Indication: DRUG HYPERSENSITIVITY
  2. HYDROMORPHONE HYDROCHLORIDE [Suspect]
     Indication: PAIN
  3. (RED BLOOD CELLS) [Concomitant]
  4. (PHENYLEPHRINE) [Concomitant]
  5. (SUFENTANIL) [Concomitant]
  6. (DEXMEDETOMIDINE) [Concomitant]
  7. (KETOROLAC) [Concomitant]
  8. (ALBUMIN) [Concomitant]
  9. (I. V. SOLUTIONS) [Concomitant]

REACTIONS (5)
  - Dyspnoea [None]
  - Tachypnoea [None]
  - Pneumothorax [None]
  - Abdominal compartment syndrome [None]
  - Intestinal dilatation [None]
